FAERS Safety Report 4824373-0 (Version None)
Quarter: 2005Q4

REPORT INFORMATION
  Report Type: 
  Country: None (occurrence: None)
  Receive Date: 20051109
  Receipt Date: 20050613
  Transmission Date: 20060501
  Serious: Yes (Life-Threatening, Hospitalization, Disabling)
  Sender: FDA-Public Use
  Company Number: DE-MERCK-0506DEU00119

PATIENT
  Age: 58 Year
  Sex: Male
  Weight: 91 kg

DRUGS (8)
  1. VIOXX [Suspect]
     Indication: SYNOVITIS
     Route: 048
     Dates: start: 20030501, end: 20030501
  2. VIOXX [Suspect]
     Route: 048
     Dates: start: 20040121, end: 20040125
  3. VIOXX [Suspect]
     Route: 048
     Dates: start: 20040101, end: 20040901
  4. VIOXX [Suspect]
     Route: 048
     Dates: start: 20030801, end: 20040120
  5. VIOXX [Suspect]
     Indication: OSTEOARTHRITIS
     Route: 048
     Dates: start: 20030501, end: 20030501
  6. VIOXX [Suspect]
     Route: 048
     Dates: start: 20040121, end: 20040125
  7. VIOXX [Suspect]
     Route: 048
     Dates: start: 20040101, end: 20040901
  8. VIOXX [Suspect]
     Route: 048
     Dates: start: 20030801, end: 20040120

REACTIONS (5)
  - DEEP VEIN THROMBOSIS [None]
  - IMPAIRED HEALING [None]
  - OSTEOARTHRITIS [None]
  - SCOLIOSIS [None]
  - SPINAL OSTEOARTHRITIS [None]
